FAERS Safety Report 6282597-2 (Version None)
Quarter: 2009Q3

REPORT INFORMATION
  Report Type: 
  Country: None (occurrence: None)
  Receive Date: 20090724
  Receipt Date: 20090709
  Transmission Date: 20100115
  Serious: Yes (Other)
  Sender: FDA-Public Use
  Company Number: PHEH2009US07364

PATIENT
  Sex: Male

DRUGS (5)
  1. ZOMETA [Suspect]
     Indication: MULTIPLE MYELOMA
  2. CHEMOTHERAPEUTICS NOS [Concomitant]
  3. POTASSIUM CHLORIDE [Concomitant]
  4. FLOMAX [Concomitant]
  5. PROSCAR [Concomitant]

REACTIONS (3)
  - BONE DISORDER [None]
  - INFECTION [None]
  - OSTEONECROSIS [None]
